FAERS Safety Report 17476949 (Version 4)
Quarter: 2023Q2

REPORT INFORMATION
  Report Type: Report from Study
  Country: US (occurrence: US)
  Receive Date: 20200228
  Receipt Date: 20230518
  Transmission Date: 20230722
  Serious: Yes (Other)
  Sender: FDA-Public Use
  Company Number: US-JNJFOC-20190612511

PATIENT
  Age: 31 Year
  Sex: Female
  Weight: 49.9 kg

DRUGS (14)
  1. STELARA [Suspect]
     Active Substance: USTEKINUMAB
     Indication: Crohn^s disease
     Dosage: 6 TIMES A YEAR
     Route: 058
     Dates: start: 201704, end: 20190624
  2. STELARA [Suspect]
     Active Substance: USTEKINUMAB
     Route: 058
     Dates: start: 20200406
  3. AZITHROMYCIN [Concomitant]
     Active Substance: AZITHROMYCIN
     Indication: Acne
     Route: 061
     Dates: start: 20190421, end: 20190715
  4. BUDESONIDE [Concomitant]
     Active Substance: BUDESONIDE
     Indication: Crohn^s disease
     Route: 048
     Dates: start: 20181101, end: 20181130
  5. BUDESONIDE [Concomitant]
     Active Substance: BUDESONIDE
     Route: 048
     Dates: start: 20181201, end: 20181231
  6. BUDESONIDE [Concomitant]
     Active Substance: BUDESONIDE
     Route: 048
     Dates: start: 20190101, end: 20190201
  7. DRAMAMINE [Concomitant]
     Active Substance: DIMENHYDRINATE
     Indication: Motion sickness
     Route: 048
     Dates: start: 20190120, end: 20190120
  8. EXCEDRIN [Concomitant]
     Active Substance: ACETAMINOPHEN\ASPIRIN\CAFFEINE
     Indication: Migraine
     Route: 048
     Dates: start: 20190120, end: 20190120
  9. VITAMIN D [Concomitant]
     Active Substance: VITAMIN D NOS
     Route: 048
     Dates: start: 20190415, end: 20190916
  10. CLARITIN [Concomitant]
     Active Substance: LORATADINE
     Indication: Multiple allergies
     Route: 048
     Dates: start: 20190629, end: 20190713
  11. COLACE [Concomitant]
     Active Substance: DOCUSATE SODIUM
     Indication: Constipation
     Route: 048
     Dates: start: 20190723, end: 20190805
  12. MIRALAX [Concomitant]
     Active Substance: POLYETHYLENE GLYCOL 3350
     Route: 048
     Dates: start: 20190721, end: 20190721
  13. PENTASA [Concomitant]
     Active Substance: MESALAMINE
     Indication: Crohn^s disease
     Route: 048
  14. MULTI SYMPTOM TYLENOL COLD [Concomitant]
     Indication: Headache

REACTIONS (4)
  - Caesarean section [Unknown]
  - Exposure during pregnancy [Recovered/Resolved]
  - Sinusitis [Recovered/Resolved]
  - Ear infection [Recovered/Resolved]

NARRATIVE: CASE EVENT DATE: 20190113
